FAERS Safety Report 7796055-7 (Version None)
Quarter: 2011Q4

REPORT INFORMATION
  Report Type: 
  Country: None (occurrence: None)
  Receive Date: 20111004
  Receipt Date: 20110921
  Transmission Date: 20120403
  Serious: Yes (Other)
  Sender: FDA-Public Use
  Company Number: GB-MYLANLABS-2011S1019720

PATIENT
  Age: 66 Year
  Sex: Male

DRUGS (2)
  1. ALENDRONIC ACID [Suspect]
     Indication: OSTEOPOROSIS
     Route: 048
     Dates: start: 20100322, end: 20110531
  2. ADCAL D3 [Concomitant]
     Indication: OSTEOPETROSIS
     Route: 048
     Dates: start: 20110216

REACTIONS (1)
  - OESOPHAGEAL CARCINOMA [None]
